FAERS Safety Report 8434525 (Version 3)
Quarter: 2014Q2

REPORT INFORMATION
  Report Type: Spontaneous
  Country: US (occurrence: US)
  Receive Date: 20120301
  Receipt Date: 20140619
  Transmission Date: 20141212
  Serious: Yes (Other)
  Sender: FDA-Public Use
  Company Number: US-RANBAXY-2012US-53388

PATIENT
  Sex: Female

DRUGS (4)
  1. CARBAMAZEPINE [Suspect]
     Indication: EPILEPSY
     Dosage: UNK
     Route: 065
  2. CARBAMAZEPINE [Suspect]
     Indication: AFFECTIVE DISORDER
  3. GABAPENTIN [Suspect]
     Indication: EPILEPSY
     Dosage: UNK
     Route: 065
  4. GABAPENTIN [Suspect]
     Indication: AFFECTIVE DISORDER

REACTIONS (2)
  - Exposure during pregnancy [Recovered/Resolved]
  - Congenital anomaly in offspring [Unknown]
